FAERS Safety Report 10194798 (Version 1)
Quarter: 2014Q2

REPORT INFORMATION
  Report Type: Not Available
  Country: US (occurrence: US)
  Receive Date: 20140526
  Receipt Date: 20140526
  Transmission Date: 20141212
  Serious: No
  Sender: FDA-Public Use
  Company Number: US-LUPIN PHARMACEUTICALS INC.-E2B_00001774

PATIENT
  Age: 73 Year
  Sex: Female
  Weight: 53.12 kg

DRUGS (11)
  1. RABEPRAZOLE SODIUM DELAYED-RELEASE TABLETS [Suspect]
     Indication: GASTROOESOPHAGEAL REFLUX DISEASE
     Dates: start: 20140220, end: 20140225
  2. ACCOLATE [Concomitant]
     Indication: ASTHMA
     Route: 065
  3. ACYCLOVIR [Concomitant]
     Indication: HERPES VIRUS INFECTION
     Route: 065
  4. LESCOL XL [Concomitant]
     Indication: HYPERCHOLESTEROLAEMIA
     Route: 065
  5. MEDROL [Concomitant]
     Indication: PRODUCT USED FOR UNKNOWN INDICATION
     Route: 065
  6. PERFOROMIST [Concomitant]
     Indication: PRODUCT USED FOR UNKNOWN INDICATION
     Route: 065
  7. PULMICORT [Concomitant]
     Indication: PRODUCT USED FOR UNKNOWN INDICATION
     Route: 065
  8. XOLAIR [Concomitant]
     Indication: ASTHMA
     Route: 065
  9. ZOFRAN [Concomitant]
     Indication: NAUSEA
  10. ZOFRAN [Concomitant]
     Indication: VOMITING
  11. IRBESARTAN [Concomitant]
     Indication: HYPERTENSION
     Route: 065

REACTIONS (3)
  - Gastrooesophageal reflux disease [Not Recovered/Not Resolved]
  - Nausea [Not Recovered/Not Resolved]
  - Drug ineffective [Not Recovered/Not Resolved]
